FAERS Safety Report 8459120-7 (Version None)
Quarter: 2012Q2

REPORT INFORMATION
  Report Type: 
  Country: None (occurrence: None)
  Receive Date: 20120622
  Receipt Date: 20120611
  Transmission Date: 20120825
  Serious: Yes (Hospitalization)
  Sender: FDA-Public Use
  Company Number: US-SANOFI-AVENTIS-2012SA041806

PATIENT
  Age: 56 Year
  Sex: Male

DRUGS (2)
  1. PLAVIX [Suspect]
  2. ASPIRIN [Suspect]

REACTIONS (2)
  - UPPER GASTROINTESTINAL HAEMORRHAGE [None]
  - MALLORY-WEISS SYNDROME [None]
